FAERS Safety Report 22246433 (Version 3)
Quarter: 2023Q2

REPORT INFORMATION
  Report Type: Spontaneous
  Country: CA (occurrence: CA)
  Receive Date: 20230424
  Receipt Date: 20230601
  Transmission Date: 20230722
  Serious: Yes (Other)
  Sender: FDA-Public Use
  Company Number: CA-LANTHEUS-LMI-2023-00457

PATIENT
  Sex: Male

DRUGS (2)
  1. DEFINITY [Suspect]
     Active Substance: PERFLUTREN
     Indication: Echocardiogram
     Dosage: 0.45 MILLILITRE (AN UNSPECIFIED AMOUNT OF DEFINITY WAS ADDED TO A SYRINGE OF NORMAL SALINE TO MAKE A
     Route: 042
  2. LEVOPHED [Concomitant]
     Active Substance: NOREPINEPHRINE BITARTRATE
     Indication: Product used for unknown indication
     Dosage: UNK

REACTIONS (2)
  - Necrosis [Unknown]
  - Injection site extravasation [Unknown]
